FAERS Safety Report 5669519-X (Version None)
Quarter: 2008Q1

REPORT INFORMATION
  Report Type: 
  Country: None (occurrence: None)
  Receive Date: 20080317
  Receipt Date: 20080305
  Transmission Date: 20080703
  Serious: Yes (Disabling)
  Sender: FDA-Public Use
  Company Number: PHBS2008CN03042

PATIENT

DRUGS (2)
  1. PEG-INTRON [Suspect]
     Indication: HEPATITIS B
     Dates: start: 20071101, end: 20080303
  2. SEBIVO [Suspect]
     Indication: HEPATITIS B
     Dosage: 600 MG, QD
     Route: 048
     Dates: start: 20071101, end: 20080303

REACTIONS (3)
  - ABASIA [None]
  - MYALGIA [None]
  - OEDEMA PERIPHERAL [None]
